FAERS Safety Report 5106730-0 (Version None)
Quarter: 2006Q3

REPORT INFORMATION
  Report Type: 
  Country: None (occurrence: None)
  Receive Date: 20060913
  Receipt Date: 20060831
  Transmission Date: 20061208
  Serious: Yes (Other)
  Sender: FDA-Public Use
  Company Number: USA-2006-0024716

PATIENT
  Age: 4 Year
  Sex: Male

DRUGS (4)
  1. CEFDITOREN PIVOXIL (SIMILAR TO NDA 21-222) (CEFDITOREN PIVOXIL)OTHER [Suspect]
     Indication: DRUG USE FOR UNKNOWN INDICATION
     Dosage: UNK MG, DAILY; ORAL
     Route: 048
     Dates: start: 20060605, end: 20060609
  2. CEFDITOREN PIVOXIL (SIMILAR TO NDA 21-222) (CEFDITOREN PIVOXIL); OTHER [Suspect]
     Indication: BRONCHITIS ACUTE
     Dosage: 159MG, DAILY, ORAL
     Route: 048
     Dates: start: 20060620, end: 20060621
  3. POLARAMINE (DEXCHOLORPHENIRAMINE MALEATE) [Concomitant]
  4. ATOCK (FORMOTEROL FUMARATE( [Concomitant]

REACTIONS (6)
  - BLOOD KETONE BODY PRESENT [None]
  - DECREASED APPETITE [None]
  - DEPRESSED MOOD [None]
  - GAIT DISTURBANCE [None]
  - HYPOGLYCAEMIA [None]
  - WHITE BLOOD CELL COUNT INCREASED [None]
